FAERS Safety Report 5734307-2 (Version None)
Quarter: 2008Q2

REPORT INFORMATION
  Report Type: 
  Country: None (occurrence: None)
  Receive Date: 20080512
  Receipt Date: 20080509
  Transmission Date: 20081010
  Serious: Yes (Hospitalization, Other)
  Sender: FDA-Public Use
  Company Number: IT-BRISTOL-MYERS SQUIBB COMPANY-14184501

PATIENT
  Age: 29 Year
  Sex: Female

DRUGS (1)
  1. COUMADIN [Suspect]
     Indication: DIALYSIS
     Route: 048
     Dates: start: 20070101, end: 20080321

REACTIONS (5)
  - AZOTAEMIA [None]
  - BLOOD CREATININE INCREASED [None]
  - HAEMATOCRIT DECREASED [None]
  - HAEMOGLOBIN DECREASED [None]
  - METRORRHAGIA [None]
